FAERS Safety Report 11989599 (Version 1)
Quarter: 2016Q1

REPORT INFORMATION
  Report Type: Spontaneous
  Country: US (occurrence: US)
  Receive Date: 20160202
  Receipt Date: 20160202
  Transmission Date: 20160526
  Serious: No
  Sender: FDA-Public Use
  Company Number: US-ROCHE-1543904

PATIENT
  Sex: Female

DRUGS (22)
  1. CLARITIN [Concomitant]
     Active Substance: LORATADINE
     Dosage: 1 TABLET BY MOUTH AS NEEDED
     Route: 048
  2. CHOLECALCIFEROL [Concomitant]
     Active Substance: CHOLECALCIFEROL
     Dosage: 2000 UNITS
     Route: 048
  3. VITAMIN B12 [Concomitant]
     Active Substance: CYANOCOBALAMIN
     Dosage: EVERY MORNING
     Route: 048
  4. CYMBALTA [Concomitant]
     Active Substance: DULOXETINE HYDROCHLORIDE
     Dosage: 1 CAPSULE BY MOUTH TWICE A DAY WITHOUT CRUSHING
     Route: 048
  5. LIDODERM [Concomitant]
     Active Substance: LIDOCAINE
     Dosage: 5% PATCH? APPLY 1 PATCH TO THE SKIN AS NEEDED AND REMOVE  AFTER 12 HOURS.
     Route: 011
  6. ATIVAN [Concomitant]
     Active Substance: LORAZEPAM
     Dosage: 1 TABLET  THRICE A DAY AS NEEDED.
     Route: 048
  7. MAG-OX [Concomitant]
     Active Substance: MAGNESIUM OXIDE
     Route: 048
  8. OXYCODONE ER [Concomitant]
     Active Substance: OXYCODONE
     Route: 048
  9. LYRICA [Suspect]
     Active Substance: PREGABALIN
     Indication: PRODUCT USED FOR UNKNOWN INDICATION
     Route: 048
  10. OXYCODONE [Concomitant]
     Active Substance: OXYCODONE
     Dosage: 2 TABLETS BY MOUTH EVERY 4 HOURS  AS NEEDED
     Route: 048
  11. CELEXA (UNITED STATES) [Concomitant]
     Route: 048
  12. LASIX [Concomitant]
     Active Substance: FUROSEMIDE
     Dosage: 2 TABLETS
     Route: 065
  13. NORCO [Concomitant]
     Active Substance: ACETAMINOPHEN\HYDROCODONE BITARTRATE
     Dosage: 10 MG-350 MG; 1 TABLET BY MOUTH EVERY 4 HOURS AS NEEDED.
     Route: 048
  14. TORADOL [Suspect]
     Active Substance: KETOROLAC TROMETHAMINE
     Indication: PRODUCT USED FOR UNKNOWN INDICATION
     Route: 065
  15. VALTREX [Concomitant]
     Active Substance: VALACYCLOVIR HYDROCHLORIDE
     Route: 048
  16. ZANAFLEX [Concomitant]
     Active Substance: TIZANIDINE HYDROCHLORIDE
     Dosage: 2 TABLETS BY MOUTH ONCE IN EVERY 6 HOURS  AS NEEDED.
     Route: 048
  17. ZANTAC [Concomitant]
     Active Substance: RANITIDINE HYDROCHLORIDE
     Dosage: 1 TABLET BY MOUTH TWICE A DAY
     Route: 048
  18. B COMPLEX VITAMIN [Concomitant]
     Dosage: EVERY MORNIG
     Route: 048
  19. SENNA LAXATIVE [Concomitant]
     Active Substance: SENNOSIDES
     Dosage: TAKE 25 MG AT BEDTIME
     Route: 048
  20. VAGIFEM [Concomitant]
     Active Substance: ESTRADIOL
     Dosage: INSERT 1 TABLET  IN THE VAGINA AT BEDTIME FOR 3 TIMES PER WEEK
     Route: 067
  21. CLARITIN [Concomitant]
     Active Substance: LORATADINE
     Route: 048
  22. DELTASONE (UNITED STATES) [Concomitant]
     Route: 048

REACTIONS (8)
  - Fibromyalgia [Unknown]
  - Gastrooesophageal reflux disease [Unknown]
  - Insomnia [Unknown]
  - Herpes simplex [Unknown]
  - Depression [Unknown]
  - Seasonal allergy [Unknown]
  - Constipation [Unknown]
  - Nicotine dependence [Unknown]
